FAERS Safety Report 19135760 (Version 1)
Quarter: 2021Q2

REPORT INFORMATION
  Report Type: Report from Study
  Country: None (occurrence: IE)
  Receive Date: 20210414
  Receipt Date: 20210414
  Transmission Date: 20210717
  Serious: Yes (Death, Other)
  Sender: FDA-Public Use
  Company Number: IE-BIOVITRUM-2021IE3623

PATIENT
  Sex: Male

DRUGS (5)
  1. PENTAMIDINE [Concomitant]
     Active Substance: PENTAMIDINE
     Dosage: 4 MG AFTER 28 DAYS
  2. ESOMEPRAZOLE. [Concomitant]
     Active Substance: ESOMEPRAZOLE MAGNESIUM
  3. ZIRTEK [Concomitant]
     Active Substance: CETIRIZINE HYDROCHLORIDE
  4. SYNAGIS [Suspect]
     Active Substance: PALIVIZUMAB
     Indication: PRODUCT USED FOR UNKNOWN INDICATION
     Route: 030
     Dates: start: 20201020
  5. URSOFALK [Concomitant]
     Active Substance: URSODIOL

REACTIONS (1)
  - Death [Fatal]
